FAERS Safety Report 9506646 (Version 1)
Quarter: 2013Q3

REPORT INFORMATION
  Report Type: Spontaneous
  Country: IR (occurrence: IR)
  Receive Date: 20130908
  Receipt Date: 20130908
  Transmission Date: 20140515
  Serious: Yes (Other)
  Sender: FDA-Public Use
  Company Number: IR-MYLANLABS-2013S1019356

PATIENT
  Age: 25 Year
  Sex: Male

DRUGS (5)
  1. FLUOROURACIL [Suspect]
     Indication: RECTOSIGMOID CANCER
     Route: 065
  2. OXALIPLATIN [Suspect]
     Indication: RECTOSIGMOID CANCER
     Route: 065
  3. IRINOTECAN [Suspect]
     Indication: RECTOSIGMOID CANCER
     Route: 065
  4. FOLINIC ACID [Concomitant]
     Indication: RECTOSIGMOID CANCER
     Route: 065
  5. FOLINIC ACID [Concomitant]
     Indication: RECTOSIGMOID CANCER
     Route: 065

REACTIONS (1)
  - Chronic myeloid leukaemia [Not Recovered/Not Resolved]
